FAERS Safety Report 10154700 (Version 1)
Quarter: 2014Q2

REPORT INFORMATION
  Report Type: Spontaneous
  Country: US (occurrence: US)
  Receive Date: 20140506
  Receipt Date: 20140506
  Transmission Date: 20141212
  Serious: Yes (Hospitalization, Other)
  Sender: FDA-Public Use
  Company Number: US-ELI_LILLY_AND_COMPANY-US201404009429

PATIENT
  Sex: Female

DRUGS (2)
  1. HUMALOG LISPRO [Suspect]
     Indication: TYPE 2 DIABETES MELLITUS
     Dosage: 60 U, BID
     Route: 065
     Dates: start: 2008
  2. HUMALOG LISPRO [Suspect]
     Dosage: 40 U, BID
     Route: 065
     Dates: start: 2008

REACTIONS (4)
  - Cerebrovascular accident [Unknown]
  - Blindness unilateral [Unknown]
  - Muscle rupture [Unknown]
  - Road traffic accident [Unknown]
